FAERS Safety Report 24770132 (Version 5)
Quarter: 2025Q1

REPORT INFORMATION
  Report Type: Spontaneous
  Country: IT (occurrence: IT)
  Receive Date: 20241224
  Receipt Date: 20250208
  Transmission Date: 20250409
  Serious: Yes (Hospitalization, Other)
  Sender: AUROBINDO
  Company Number: IT-AUROBINDO-AUR-APL-2024-063336

PATIENT
  Age: 45 Year
  Sex: Female

DRUGS (10)
  1. OLANZAPINE [Suspect]
     Active Substance: OLANZAPINE
     Indication: Huntington^s disease
     Dosage: 5 MILLIGRAM, TWO TIMES A DAY
     Route: 065
     Dates: start: 2022
  2. QUETIAPINE [Suspect]
     Active Substance: QUETIAPINE
     Indication: Huntington^s disease
     Route: 065
     Dates: start: 2022
  3. QUETIAPINE [Suspect]
     Active Substance: QUETIAPINE
     Route: 065
     Dates: start: 2022
  4. QUETIAPINE [Suspect]
     Active Substance: QUETIAPINE
     Dosage: 5 MILLIGRAM, TWO TIMES A DAY
     Route: 065
     Dates: start: 2022
  5. ZOLPIDEM [Suspect]
     Active Substance: ZOLPIDEM TARTRATE
     Indication: Huntington^s disease
     Route: 065
     Dates: start: 2022
  6. VALPROATE SODIUM [Suspect]
     Active Substance: VALPROATE SODIUM
     Indication: Huntington^s disease
     Dosage: 200 MILLIGRAM, TWO TIMES A DAY
     Route: 065
     Dates: start: 2022
  7. HALOPERIDOL [Suspect]
     Active Substance: HALOPERIDOL
     Indication: Huntington^s disease
     Route: 065
  8. HALOPERIDOL [Suspect]
     Active Substance: HALOPERIDOL
     Route: 065
  9. CLONAZEPAM [Suspect]
     Active Substance: CLONAZEPAM
     Indication: Psychomotor hyperactivity
     Route: 065
  10. CLONAZEPAM [Suspect]
     Active Substance: CLONAZEPAM
     Indication: Insomnia

REACTIONS (2)
  - Neuroleptic malignant syndrome [Recovered/Resolved]
  - Off label use [Recovered/Resolved]
